FAERS Safety Report 6303649-4 (Version None)
Quarter: 2009Q3

REPORT INFORMATION
  Report Type: 
  Country: None (occurrence: None)
  Receive Date: 20090807
  Receipt Date: 20090807
  Transmission Date: 20100115
  Serious: Yes (Other)
  Sender: FDA-Public Use
  Company Number: None

PATIENT
  Age: 69 Year
  Sex: Female
  Weight: 55.5 kg

DRUGS (1)
  1. DOXORUBICIN 2MG//ML [Suspect]
     Indication: BREAST CANCER
     Dosage: 100 MG Q21 DAYS IV
     Route: 042
     Dates: start: 20070621, end: 20070809

REACTIONS (6)
  - CARDIOMYOPATHY [None]
  - CHEST PAIN [None]
  - CONGESTIVE CARDIOMYOPATHY [None]
  - STRESS CARDIOMYOPATHY [None]
  - TROPONIN INCREASED [None]
  - VIRAL MYOCARDITIS [None]
